FAERS Safety Report 11763693 (Version 1)
Quarter: 2015Q4

REPORT INFORMATION
  Report Type: Spontaneous
  Country: US (occurrence: US)
  Receive Date: 20151120
  Receipt Date: 20151120
  Transmission Date: 20160304
  Serious: No
  Sender: FDA-Public Use
  Company Number: US-ELI_LILLY_AND_COMPANY-US200710005506

PATIENT
  Sex: Female

DRUGS (3)
  1. FORTEO [Suspect]
     Active Substance: TERIPARATIDE
     Dosage: UNK, QD
  2. FORTEO [Suspect]
     Active Substance: TERIPARATIDE
     Indication: OSTEOPOROSIS
     Dosage: UNK UNK, QD
     Dates: start: 20070914
  3. AXID [Concomitant]
     Active Substance: NIZATIDINE
     Indication: OESOPHAGEAL DISORDER

REACTIONS (4)
  - Nausea [Recovered/Resolved]
  - Oesophageal discomfort [Recovered/Resolved]
  - Eructation [Recovered/Resolved]
  - Incorrect product storage [Unknown]
